FAERS Safety Report 20935432 (Version 4)
Quarter: 2022Q3

REPORT INFORMATION
  Report Type: Report from Study
  Country: CN (occurrence: CN)
  Receive Date: 20220609
  Receipt Date: 20220808
  Transmission Date: 20221027
  Serious: Yes (Hospitalization)
  Sender: FDA-Public Use
  Company Number: CN-NOVARTISPH-NVSC2022CN129212

PATIENT
  Age: 84 Year
  Sex: Male
  Weight: 60 kg

DRUGS (3)
  1. SECUKINUMAB [Suspect]
     Active Substance: SECUKINUMAB
     Indication: Psoriasis
     Dosage: 300 MG
     Route: 058
     Dates: start: 20220228, end: 20220531
  2. SECUKINUMAB [Suspect]
     Active Substance: SECUKINUMAB
     Dosage: 300 MG
     Route: 058
     Dates: start: 20220608
  3. LEVOFLOXACIN HYDROCHLORIDE [Concomitant]
     Active Substance: LEVOFLOXACIN HYDROCHLORIDE
     Indication: Heart rate decreased
     Dosage: 0.5 G
     Route: 065

REACTIONS (4)
  - Migraine [Recovering/Resolving]
  - Headache [Recovering/Resolving]
  - Ulcer [Recovering/Resolving]
  - Limb injury [Recovering/Resolving]

NARRATIVE: CASE EVENT DATE: 20220401
